FAERS Safety Report 10381333 (Version 1)
Quarter: 2014Q1

REPORT INFORMATION
  Report Type: Spontaneous
  Country: US (occurrence: None)
  Receive Date: 20140306
  Receipt Date: 20140306
  Transmission Date: 20141002
  Serious: Yes (Hospitalization)
  Sender: FDA-Public Use
  Company Number: 163-21880-13023955

PATIENT
  Age: 70 Year
  Sex: Male

DRUGS (6)
  1. REVLIMID (LENALIDOMIDE) [Suspect]
     Indication: PLASMA CELL MYELOMA
     Dosage: 14 IN 14D TEMPORARILY INTERRUPTED
     Route: 048
     Dates: start: 20121128
  2. CENTRUM SILVER (CENTRUM SILVER) [Concomitant]
  3. LOVASTATIN (LOVASTATIN) [Concomitant]
  4. OMEPRAZOLE (OMEPRAZOLE) [Concomitant]
  5. SODIUM BICARBONATE (SOIDUIM BICARBONATE) [Concomitant]
  6. TRAMADOL HCL (TRAMADOL HYDROCHLORIDE) [Concomitant]

REACTIONS (2)
  - Pneumonia [None]
  - Adverse reaction [None]
